FAERS Safety Report 5083454-X (Version None)
Quarter: 2006Q3

REPORT INFORMATION
  Report Type: 
  Country: None (occurrence: None)
  Receive Date: 20060818
  Receipt Date: 20060726
  Transmission Date: 20061208
  Serious: Yes (Hospitalization)
  Sender: FDA-Public Use
  Company Number: 2006GB01292

PATIENT
  Age: 24441 Day
  Sex: Male

DRUGS (15)
  1. IRESSA [Suspect]
     Indication: NON-SMALL CELL LUNG CANCER
     Route: 048
     Dates: start: 20060624, end: 20060726
  2. METOPROLOL TARTRATE [Concomitant]
     Indication: MYOCARDIAL ISCHAEMIA
     Route: 048
     Dates: end: 20060730
  3. WARFARIN SODIUM [Concomitant]
     Indication: MYOCARDIAL ISCHAEMIA
     Dosage: VARYING DOSE
     Route: 048
     Dates: end: 20060721
  4. SIMVASTATIN [Concomitant]
     Indication: MYOCARDIAL ISCHAEMIA
     Route: 048
  5. QUININE SULFATE [Concomitant]
     Indication: MUSCLE SPASMS
     Route: 048
  6. ESOMEPRAZOLE MAGNESIUM [Concomitant]
     Indication: DUODENAL ULCER
     Route: 048
     Dates: end: 20060725
  7. MORPHINE SULFATE [Concomitant]
     Indication: GROIN PAIN
     Route: 048
     Dates: start: 20060623, end: 20060701
  8. MORPHINE SULFATE [Concomitant]
     Indication: PAIN
     Route: 048
     Dates: start: 20060623, end: 20060701
  9. MORPHINE SULFATE [Concomitant]
     Route: 048
     Dates: start: 20060101, end: 20060623
  10. MORPHINE SULFATE [Concomitant]
     Route: 048
     Dates: start: 20060101, end: 20060623
  11. MORPHINE SULFATE [Concomitant]
     Route: 048
     Dates: start: 20060701
  12. MORPHINE SULFATE [Concomitant]
     Route: 048
     Dates: start: 20060701
  13. ACETAMINOPHEN [Concomitant]
     Indication: PAIN
     Route: 048
     Dates: start: 20060501, end: 20060725
  14. LOPERAMIDE [Concomitant]
     Indication: DIARRHOEA
     Route: 048
     Dates: start: 20060711, end: 20060725
  15. CYCLIZINE [Concomitant]
     Indication: VOMITING
     Route: 048
     Dates: start: 20060628, end: 20060728

REACTIONS (2)
  - ANAEMIA [None]
  - VOMITING [None]
